FAERS Safety Report 17905492 (Version 1)
Quarter: 2020Q2

REPORT INFORMATION
  Report Type: Spontaneous
  Country: US (occurrence: US)
  Receive Date: 20200616
  Receipt Date: 20200616
  Transmission Date: 20200714
  Serious: No
  Sender: FDA-Public Use
  Company Number: US-ROCHE-2350163

PATIENT
  Sex: Male
  Weight: 51.3 kg

DRUGS (4)
  1. ACTEMRA [Suspect]
     Active Substance: TOCILIZUMAB
     Indication: PRODUCT USED FOR UNKNOWN INDICATION
     Route: 058
  2. HAVRIX [Concomitant]
     Active Substance: HEPATITIS A VIRUS STRAIN HM175 ANTIGEN (FORMALDEHYDE INACTIVATED)
     Route: 030
     Dates: start: 20190424
  3. FLUZONE [INFLUENZA VACCINE] [Concomitant]
     Route: 065
     Dates: start: 20190424
  4. NAPROXEN. [Suspect]
     Active Substance: NAPROXEN
     Indication: PRODUCT USED FOR UNKNOWN INDICATION
     Route: 048
     Dates: start: 20190701

REACTIONS (4)
  - Fatigue [Unknown]
  - Ulcer [Unknown]
  - Diarrhoea [Unknown]
  - Weight decreased [Unknown]
